FAERS Safety Report 7296153-0 (Version None)
Quarter: 2011Q1

REPORT INFORMATION
  Report Type: 
  Country: None (occurrence: None)
  Receive Date: 20110216
  Receipt Date: 20110214
  Transmission Date: 20110831
  Serious: Yes (Other)
  Sender: FDA-Public Use
  Company Number: US-SHIRE-ALL1-2010-06497

PATIENT
  Sex: Male

DRUGS (1)
  1. LIALDA [Suspect]
     Indication: COLITIS ULCERATIVE
     Dosage: 1.2 G, 1X/DAY:QD
     Route: 048
     Dates: start: 20100701, end: 20101001

REACTIONS (2)
  - OESOPHAGEAL CARCINOMA [None]
  - DRUG INEFFECTIVE [None]
